FAERS Safety Report 8204377-0 (Version None)
Quarter: 2012Q1

REPORT INFORMATION
  Report Type: 
  Country: None (occurrence: None)
  Receive Date: 20120313
  Receipt Date: 20120313
  Transmission Date: 20120608
  Serious: No
  Sender: FDA-Public Use
  Company Number: None

PATIENT
  Age: 57 Year
  Sex: Female
  Weight: 70.306 kg

DRUGS (2)
  1. TRANSDERM SCOP [Suspect]
     Indication: DIZZINESS
     Route: 003
     Dates: start: 20120223, end: 20120308
  2. TRANSDERM SCOP [Suspect]
     Indication: NAUSEA
     Route: 003
     Dates: start: 20120223, end: 20120308

REACTIONS (3)
  - NAUSEA [None]
  - DIZZINESS [None]
  - IMPAIRED WORK ABILITY [None]
